FAERS Safety Report 5565593-X (Version None)
Quarter: 2007Q4

REPORT INFORMATION
  Report Type: 
  Country: None (occurrence: None)
  Receive Date: 20071218
  Receipt Date: 20071217
  Transmission Date: 20080405
  Serious: Yes (Other)
  Sender: FDA-Public Use
  Company Number: US-ROXANE LABORATORIES, INC-2007-BP-26355RO

PATIENT
  Sex: Female

DRUGS (1)
  1. METHADONE HCL TABLETS USP, 5 MG [Suspect]

REACTIONS (1)
  - COMA [None]
